FAERS Safety Report 23689899 (Version 1)
Quarter: 2024Q2

REPORT INFORMATION
  Report Type: Spontaneous
  Country: JP (occurrence: JP)
  Receive Date: 20240401
  Receipt Date: 20240401
  Transmission Date: 20240716
  Serious: Yes (Other)
  Sender: FDA-Public Use
  Company Number: JP-BAYER-2024A044767

PATIENT
  Sex: Female

DRUGS (1)
  1. RIVAROXABAN [Suspect]
     Active Substance: RIVAROXABAN
     Indication: Product used for unknown indication
     Dosage: UNK UNK, QD
     Route: 048

REACTIONS (15)
  - Angina pectoris [Unknown]
  - Haematemesis [Unknown]
  - Suicidal ideation [Unknown]
  - Gingival bleeding [Unknown]
  - Eye haemorrhage [Unknown]
  - Loose tooth [Unknown]
  - Vaginal haemorrhage [Unknown]
  - Hypoaesthesia [Unknown]
  - Skin discolouration [Unknown]
  - Onychoclasis [Unknown]
  - Pain in extremity [Unknown]
  - Ocular hyperaemia [Unknown]
  - Chest pain [Unknown]
  - Haemorrhage [Unknown]
  - Tooth fracture [Unknown]
